FAERS Safety Report 16551744 (Version 2)
Quarter: 2019Q3

REPORT INFORMATION
  Report Type: Spontaneous
  Country: JP (occurrence: JP)
  Receive Date: 20190710
  Receipt Date: 20190926
  Transmission Date: 20191004
  Serious: Yes (Hospitalization)
  Sender: FDA-Public Use
  Company Number: JP-ROCHE-2341767

PATIENT
  Age: 63 Year
  Sex: Female
  Weight: 51 kg

DRUGS (8)
  1. EMEND [Concomitant]
     Active Substance: APREPITANT
     Dosage: THE FRACTIONATION DOSE FREQUENCY IS UNCERTAIN.
     Route: 065
     Dates: start: 20190406, end: 20190406
  2. TAZOPIPE [Concomitant]
     Active Substance: PIPERACILLIN SODIUM\TAZOBACTAM SODIUM
     Route: 065
     Dates: start: 20190413, end: 20190422
  3. AVASTIN [Suspect]
     Active Substance: BEVACIZUMAB
     Indication: OVARIAN CANCER
     Route: 041
     Dates: start: 20190406
  4. CARBOPLATIN. [Concomitant]
     Active Substance: CARBOPLATIN
     Indication: OVARIAN CANCER
     Route: 041
     Dates: start: 20190406, end: 20190406
  5. RESTAMIN [DIPHENHYDRAMINE] [Concomitant]
     Dosage: THE FRACTIONATION DOSE FREQUENCY IS UNCERTAIN.
     Route: 048
     Dates: start: 20190406, end: 20190406
  6. EMEND [Concomitant]
     Active Substance: APREPITANT
     Route: 065
     Dates: start: 20190407, end: 20190408
  7. PACLITAXEL. [Concomitant]
     Active Substance: PACLITAXEL
     Indication: OVARIAN CANCER
     Route: 041
     Dates: start: 20190406, end: 20190406
  8. GRAN [Concomitant]
     Active Substance: FILGRASTIM
     Route: 065
     Dates: start: 20190413, end: 20190415

REACTIONS (2)
  - Ileal perforation [Recovered/Resolved]
  - Shock [Unknown]

NARRATIVE: CASE EVENT DATE: 20190423
